FAERS Safety Report 5409854-3 (Version None)
Quarter: 2007Q3

REPORT INFORMATION
  Report Type: 
  Country: None (occurrence: None)
  Receive Date: 20070809
  Receipt Date: 20070803
  Transmission Date: 20080115
  Serious: Yes (Hospitalization)
  Sender: FDA-Public Use
  Company Number: HQWYE388403AUG07

PATIENT
  Sex: Female

DRUGS (8)
  1. CORDARONE [Suspect]
     Dosage: UNKNOWN
     Route: 048
     Dates: start: 20070606, end: 20070616
  2. PREVISCAN [Suspect]
     Dosage: UNKNOWN
     Route: 048
     Dates: start: 20070606, end: 20070616
  3. DUPHALAC [Concomitant]
     Dosage: UNKNOWN
     Route: 048
  4. SEROPRAM [Concomitant]
     Dosage: UNKNOWN
     Route: 048
  5. LORAZEPAM [Concomitant]
     Dosage: UNKNOWN
     Route: 048
  6. FONZYLANE [Concomitant]
     Dosage: UNKNOWN
     Route: 048
  7. COVERSYL [Suspect]
     Dosage: UNKNOWN
     Route: 048
     Dates: end: 20070101
  8. LASIX [Concomitant]
     Dosage: UNKNOWN
     Route: 048

REACTIONS (5)
  - FACE OEDEMA [None]
  - GENERALISED ERYTHEMA [None]
  - PRURITUS [None]
  - PURPURA [None]
  - RASH MACULO-PAPULAR [None]
